FAERS Safety Report 23645825 (Version 1)
Quarter: 2024Q1

REPORT INFORMATION
  Report Type: Spontaneous
  Country: NL (occurrence: NL)
  Receive Date: 20240319
  Receipt Date: 20240319
  Transmission Date: 20240410
  Serious: Yes (Death, Life-Threatening, Hospitalization, Other)
  Sender: FDA-Public Use
  Company Number: NL-CELGENE-NLD-20210603381

PATIENT
  Age: 59 Year
  Sex: Male

DRUGS (55)
  1. LENALIDOMIDE [Suspect]
     Active Substance: LENALIDOMIDE
     Indication: Plasma cell myeloma
     Dosage: 25 MILLIGRAM
     Route: 048
     Dates: start: 20210607, end: 20210610
  2. DEXAMETHASONE [Suspect]
     Active Substance: DEXAMETHASONE
     Indication: Plasma cell myeloma
     Dosage: FREQUENCY TEXT: NOT PROVIDED
     Dates: start: 20210220, end: 20210303
  3. DEXAMETHASONE [Suspect]
     Active Substance: DEXAMETHASONE
     Indication: Prophylaxis
     Dosage: FREQUENCY TEXT: NOT PROVIDED
     Dates: start: 20210304, end: 20210308
  4. DEXAMETHASONE [Suspect]
     Active Substance: DEXAMETHASONE
     Dosage: FREQUENCY TEXT: NOT PROVIDED
     Dates: start: 20210309, end: 20210313
  5. DEXAMETHASONE [Suspect]
     Active Substance: DEXAMETHASONE
     Dosage: FREQUENCY TEXT: NOT PROVIDED
     Dates: start: 20210314, end: 20210322
  6. DEXAMETHASONE [Suspect]
     Active Substance: DEXAMETHASONE
     Dosage: 40 MILLIGRAM
     Route: 048
     Dates: start: 20210607, end: 20210607
  7. DEXAMETHASONE [Suspect]
     Active Substance: DEXAMETHASONE
     Dosage: 6 MILLIGRAM
     Dates: start: 20210610, end: 20210611
  8. ISATUXIMAB [Suspect]
     Active Substance: ISATUXIMAB
     Indication: Plasma cell myeloma
     Dosage: 1038 MILLIGRAM
     Route: 042
     Dates: start: 20210607, end: 20210607
  9. CARFILZOMIB [Suspect]
     Active Substance: CARFILZOMIB
     Indication: Plasma cell myeloma
     Route: 042
     Dates: start: 20210607, end: 20210607
  10. IRBESARTAN [Concomitant]
     Active Substance: IRBESARTAN
     Indication: Hypertension
     Dosage: FREQUENCY TEXT: NOT PROVIDED
     Dates: start: 20210218, end: 20210613
  11. IRBESARTAN [Concomitant]
     Active Substance: IRBESARTAN
     Indication: Chronic obstructive pulmonary disease
  12. IRBESARTAN [Concomitant]
     Active Substance: IRBESARTAN
     Indication: Peripheral motor neuropathy
  13. IRBESARTAN [Concomitant]
     Active Substance: IRBESARTAN
     Indication: Peripheral sensory neuropathy
  14. IRBESARTAN [Concomitant]
     Active Substance: IRBESARTAN
     Indication: Bone pain
  15. ACETAMINOPHEN [Concomitant]
     Active Substance: ACETAMINOPHEN
     Indication: Hypertension
     Dosage: FREQUENCY TEXT: NOT PROVIDED
     Dates: start: 20210218
  16. ACETAMINOPHEN [Concomitant]
     Active Substance: ACETAMINOPHEN
     Indication: Chronic obstructive pulmonary disease
     Dosage: FREQUENCY TEXT: NOT PROVIDED
     Dates: start: 20210315, end: 20210315
  17. ACETAMINOPHEN [Concomitant]
     Active Substance: ACETAMINOPHEN
     Indication: Peripheral motor neuropathy
     Dosage: FREQUENCY TEXT: NOT PROVIDED
     Dates: start: 20210322, end: 20210322
  18. ACETAMINOPHEN [Concomitant]
     Active Substance: ACETAMINOPHEN
     Indication: Peripheral sensory neuropathy
     Dosage: FREQUENCY TEXT: NOT PROVIDED
     Dates: start: 20210329, end: 20210329
  19. ACETAMINOPHEN [Concomitant]
     Active Substance: ACETAMINOPHEN
     Indication: Bone pain
     Dosage: FREQUENCY TEXT: NOT PROVIDED
     Dates: start: 20210406, end: 20210406
  20. ACETAMINOPHEN [Concomitant]
     Active Substance: ACETAMINOPHEN
     Indication: Prophylaxis
     Dosage: FREQUENCY TEXT: NOT PROVIDED
     Dates: start: 20210412
  21. ACETAMINOPHEN [Concomitant]
     Active Substance: ACETAMINOPHEN
     Dosage: FREQUENCY TEXT: NOT PROVIDED
     Dates: start: 20210520
  22. Indacaterol/Glycopyrronium [Concomitant]
     Indication: Hypertension
     Dosage: FREQUENCY TEXT: NOT PROVIDED
     Dates: start: 20210218
  23. Indacaterol/Glycopyrronium [Concomitant]
     Indication: Chronic obstructive pulmonary disease
  24. Indacaterol/Glycopyrronium [Concomitant]
     Indication: Peripheral motor neuropathy
  25. Indacaterol/Glycopyrronium [Concomitant]
     Indication: Peripheral sensory neuropathy
  26. Indacaterol/Glycopyrronium [Concomitant]
     Indication: Bone pain
  27. FLUTICASONE FUROATE [Concomitant]
     Active Substance: FLUTICASONE FUROATE
     Indication: Hypertension
     Dosage: FREQUENCY TEXT: NOT PROVIDED
     Route: 045
     Dates: start: 20210218
  28. FLUTICASONE FUROATE [Concomitant]
     Active Substance: FLUTICASONE FUROATE
     Indication: Chronic obstructive pulmonary disease
     Route: 045
     Dates: start: 20210610, end: 20210613
  29. FLUTICASONE FUROATE [Concomitant]
     Active Substance: FLUTICASONE FUROATE
     Indication: Peripheral motor neuropathy
  30. FLUTICASONE FUROATE [Concomitant]
     Active Substance: FLUTICASONE FUROATE
     Indication: Peripheral sensory neuropathy
  31. FLUTICASONE FUROATE [Concomitant]
     Active Substance: FLUTICASONE FUROATE
     Indication: Bone pain
  32. OXYCODONE [Concomitant]
     Active Substance: OXYCODONE\OXYCODONE HYDROCHLORIDE
     Indication: Bone pain
     Dates: start: 20210223, end: 20210223
  33. OXYCODONE [Concomitant]
     Active Substance: OXYCODONE\OXYCODONE HYDROCHLORIDE
     Indication: Prophylaxis
     Dates: start: 20210223, end: 20210303
  34. OXYCODONE [Concomitant]
     Active Substance: OXYCODONE\OXYCODONE HYDROCHLORIDE
     Dates: start: 20210310, end: 20210520
  35. PANTOPRAZOLE SODIUM [Concomitant]
     Active Substance: PANTOPRAZOLE SODIUM
     Indication: Prophylaxis
     Dosage: FREQUENCY TEXT: NOT PROVIDED
     Dates: start: 20210218, end: 20210613
  36. PANTOPRAZOLE SODIUM [Concomitant]
     Active Substance: PANTOPRAZOLE SODIUM
     Indication: SARS-CoV-2 sepsis
     Dosage: 40 MILLIGRAM
     Dates: start: 20210612, end: 20210708
  37. NADROPARIN [Concomitant]
     Active Substance: NADROPARIN
     Indication: Prophylaxis
     Dosage: FREQUENCY TEXT: NOT PROVIDED
     Dates: start: 20210218, end: 20210224
  38. RASBURICASE [Concomitant]
     Active Substance: RASBURICASE
     Indication: Prophylaxis
     Dosage: FREQUENCY TEXT: NOT PROVIDED
     Dates: start: 20210315, end: 20210315
  39. VALACYCLOVIR HYDROCHLORIDE [Concomitant]
     Active Substance: VALACYCLOVIR HYDROCHLORIDE
     Indication: Prophylaxis
     Dosage: FREQUENCY TEXT: NOT PROVIDED
     Dates: start: 20210315, end: 20210610
  40. CARBASPIRIN CALCIUM [Concomitant]
     Active Substance: CARBASPIRIN CALCIUM
     Indication: Prophylaxis
     Dosage: FREQUENCY TEXT: NOT PROVIDED
     Dates: start: 20210315, end: 20210708
  41. FLUCONAZOLE [Concomitant]
     Active Substance: FLUCONAZOLE
     Indication: Prophylaxis
     Dosage: FREQUENCY TEXT: NOT PROVIDED
     Dates: start: 20210315, end: 20210607
  42. CLEMASTINE [Concomitant]
     Active Substance: CLEMASTINE
     Indication: Prophylaxis
     Dosage: FREQUENCY TEXT: NOT PROVIDED
     Dates: start: 20210315, end: 20210315
  43. CLEMASTINE [Concomitant]
     Active Substance: CLEMASTINE
     Indication: Rash maculo-papular
     Dosage: FREQUENCY TEXT: NOT PROVIDED
     Dates: start: 20210322, end: 20210322
  44. CLEMASTINE [Concomitant]
     Active Substance: CLEMASTINE
     Dosage: FREQUENCY TEXT: NOT PROVIDED
     Dates: start: 20210329, end: 20210329
  45. CLEMASTINE [Concomitant]
     Active Substance: CLEMASTINE
     Dosage: FREQUENCY TEXT: NOT PROVIDED
     Dates: start: 20210406, end: 20210406
  46. CLEMASTINE [Concomitant]
     Active Substance: CLEMASTINE
     Dosage: FREQUENCY TEXT: NOT PROVIDED
     Dates: start: 20210412, end: 20210412
  47. CLEMASTINE [Concomitant]
     Active Substance: CLEMASTINE
     Dates: start: 20210526
  48. COTRIMOXAZOLE [Concomitant]
     Active Substance: SULFAMETHOXAZOLE\TRIMETHOPRIM
     Indication: Prophylaxis
     Dosage: FREQUENCY TEXT: NOT PROVIDED
     Dates: start: 20210322, end: 20210523
  49. ZOLEDRONIC ACID [Concomitant]
     Active Substance: ZOLEDRONIC ACID
     Indication: Prophylaxis
     Dates: start: 20210315
  50. ZOLEDRONIC ACID [Concomitant]
     Active Substance: ZOLEDRONIC ACID
     Dosage: FREQUENCY TEXT: NOT PROVIDED
     Dates: start: 20210329
  51. FUROSEMIDE [Concomitant]
     Active Substance: FUROSEMIDE
     Indication: Oedema
     Dosage: FREQUENCY TEXT: NOT PROVIDED
     Dates: start: 20210329, end: 20210613
  52. FUROSEMIDE [Concomitant]
     Active Substance: FUROSEMIDE
     Dosage: 20 MILLIGRAM
     Dates: start: 20210613, end: 20210706
  53. MAGNESIUM GLUCONATE [Concomitant]
     Active Substance: MAGNESIUM GLUCONATE
     Indication: Atrial fibrillation
     Dosage: FREQUENCY TEXT: NOT PROVIDED
     Dates: start: 20210503, end: 20210613
  54. TOCILIZUMAB [Concomitant]
     Active Substance: TOCILIZUMAB
     Indication: Product used for unknown indication
     Dosage: 800 MILLIGRAM
     Dates: start: 20210610, end: 20210610
  55. Glycerofosfor acid [Concomitant]
     Indication: Product used for unknown indication
     Dosage: 20 MML
     Dates: start: 20210612, end: 20210702

REACTIONS (1)
  - SARS-CoV-2 sepsis [Fatal]

NARRATIVE: CASE EVENT DATE: 20210610
